FAERS Safety Report 5648322-0 (Version None)
Quarter: 2008Q1

REPORT INFORMATION
  Report Type: 
  Country: None (occurrence: None)
  Receive Date: 20080229
  Receipt Date: 20080219
  Transmission Date: 20080703
  Serious: Yes (Other)
  Sender: FDA-Public Use
  Company Number: STI-2008-00717

PATIENT
  Age: 28 Year
  Sex: Female

DRUGS (1)
  1. CLOBETASOL (UNSPECIFIED) (CLOBETASOL PROPIONATE) (CLOBETASOL PROPIONAT [Suspect]
     Indication: SKIN COSMETIC PROCEDURE
     Dosage: 60 GRAMS PER WEEK

REACTIONS (8)
  - BLOOD CORTICOTROPHIN DECREASED [None]
  - BLOOD CORTISOL DECREASED [None]
  - CUSHING'S SYNDROME [None]
  - INFERTILITY FEMALE [None]
  - MYOPATHY [None]
  - OFF LABEL USE [None]
  - PSEUDOFOLLICULITIS BARBAE [None]
  - VAGINAL CANDIDIASIS [None]
